FAERS Safety Report 5229589-X (Version None)
Quarter: 2007Q1

REPORT INFORMATION
  Report Type: 
  Country: None (occurrence: None)
  Receive Date: 20070201
  Receipt Date: 20070119
  Transmission Date: 20070707
  Serious: Yes (Death, Hospitalization, Other)
  Sender: FDA-Public Use
  Company Number: 2007US-05435

PATIENT
  Age: 1 Month
  Sex: Male

DRUGS (4)
  1. PSEUDOEPHEDRINE HCL [Suspect]
     Indication: COUGH
     Dosage: ORAL
     Route: 048
  2. PSEUDOEPHEDRINE HCL [Suspect]
     Indication: COUGH
     Dosage: ORAL
     Route: 048
  3. PARACETAMOL (PARACETAMOL) SOLUTION [Concomitant]
  4. CARBINOXAMINE MALEATE [Concomitant]

REACTIONS (2)
  - DRUG TOXICITY [None]
  - INTERSTITIAL LUNG DISEASE [None]
